FAERS Safety Report 8690977 (Version 3)
Quarter: 2013Q2

REPORT INFORMATION
  Report Type: Spontaneous
  Country: JP (occurrence: JP)
  Receive Date: 20120730
  Receipt Date: 20130626
  Transmission Date: 20140414
  Serious: Yes (Other)
  Sender: FDA-Public Use
  Company Number: JP-009507513-1207JPN009850

PATIENT
  Age: 36 Year
  Sex: Female

DRUGS (3)
  1. RINDERON [Suspect]
     Indication: MATERNAL THERAPY TO ENHANCE FOETAL LUNG MATURITY
     Dosage: 2DAY
  2. RITODRINE HYDROCHLORIDE [Suspect]
     Indication: THREATENED LABOUR
  3. MAGNESIUM SULFATE [Concomitant]
     Indication: THREATENED LABOUR

REACTIONS (2)
  - Pulmonary oedema [Recovered/Resolved]
  - Maternal exposure during pregnancy [Unknown]
